FAERS Safety Report 19076867 (Version 1)
Quarter: 2021Q1

REPORT INFORMATION
  Report Type: Spontaneous
  Country: LB (occurrence: LB)
  Receive Date: 20210331
  Receipt Date: 20210331
  Transmission Date: 20210420
  Serious: Yes (Hospitalization, Other)
  Sender: FDA-Public Use
  Company Number: LB-UNICHEM PHARMACEUTICALS (USA) INC-UCM202103-000270

PATIENT
  Age: 35 Year
  Sex: Male

DRUGS (1)
  1. TADALAFIL. [Suspect]
     Active Substance: TADALAFIL
     Indication: SEXUAL DYSFUNCTION
     Dosage: 3 TABLETS OF TADALAFIL 5 MG PRECOITUS

REACTIONS (2)
  - Subarachnoid haemorrhage [Recovered/Resolved]
  - Tachycardia [Recovered/Resolved]
